FAERS Safety Report 19791034 (Version 1)
Quarter: 2021Q3

REPORT INFORMATION
  Report Type: Spontaneous
  Country: JP (occurrence: JP)
  Receive Date: 20210906
  Receipt Date: 20210906
  Transmission Date: 20211014
  Serious: Yes (Hospitalization)
  Sender: FDA-Public Use
  Company Number: JP-TEVA-2021-JP-1950112

PATIENT
  Age: 75 Year
  Sex: Female

DRUGS (2)
  1. PREDNISOLONE. [Suspect]
     Active Substance: PREDNISOLONE
     Indication: STILL^S DISEASE
     Dosage: 27.5 MILLIGRAM DAILY;
     Route: 065
  2. ATOVAQUONE. [Concomitant]
     Active Substance: ATOVAQUONE
     Indication: PROPHYLAXIS
     Route: 065

REACTIONS (6)
  - Acute hepatic failure [Unknown]
  - Disseminated intravascular coagulation [Unknown]
  - Encephalopathy [Unknown]
  - Still^s disease [Unknown]
  - Rebound effect [Unknown]
  - Splenomegaly [Unknown]
